APPROVED DRUG PRODUCT: STERILE WATER FOR INJECTION IN PLASTIC CONTAINER
Active Ingredient: STERILE WATER FOR INJECTION
Strength: 100%
Dosage Form/Route: LIQUID;N/A
Application: N019633 | Product #001 | TE Code: AP
Applicant: B BRAUN MEDICAL INC
Approved: Feb 29, 1988 | RLD: Yes | RS: Yes | Type: RX